FAERS Safety Report 4494494-3 (Version None)
Quarter: 2004Q4

REPORT INFORMATION
  Report Type: 
  Country: None (occurrence: None)
  Receive Date: 20041102
  Receipt Date: 20041028
  Transmission Date: 20050328
  Serious: Yes (Life-Threatening)
  Sender: FDA-Public Use
  Company Number: 2004PK01766

PATIENT
  Age: 51 Year
  Sex: Male
  Weight: 80 kg

DRUGS (9)
  1. NEXIUM [Suspect]
     Dosage: 40 MG DAILY PO
     Route: 048
  2. METHADON [Suspect]
     Indication: ABNORMAL BEHAVIOUR
     Dosage: 60 MG DAILY PO
     Route: 048
     Dates: end: 20040831
  3. METHADON [Suspect]
     Indication: MENTAL DISORDER
     Dosage: 60 MG DAILY PO
     Route: 048
     Dates: end: 20040831
  4. VALPROIC ACID [Suspect]
     Indication: HISTRIONIC PERSONALITY DISORDER
     Dosage: 1300 MG DAILY PO
     Route: 048
  5. REMERON [Suspect]
     Indication: HISTRIONIC PERSONALITY DISORDER
     Dosage: 45 MG DAILY PO
     Route: 048
     Dates: end: 20040831
  6. BECOZYM [Concomitant]
  7. BENERVA [Concomitant]
  8. ACETYLCYSTEINE [Concomitant]
  9. SERESTA [Concomitant]

REACTIONS (13)
  - ACTIVITIES OF DAILY LIVING IMPAIRED [None]
  - BLOOD POTASSIUM DECREASED [None]
  - CARDIAC ARREST [None]
  - CYANOSIS [None]
  - DISORIENTATION [None]
  - DRUG INTERACTION [None]
  - ELECTROCARDIOGRAM QT PROLONGED [None]
  - ENCEPHALOPATHY [None]
  - FAECAL INCONTINENCE [None]
  - HYPOXIA [None]
  - TORSADE DE POINTES [None]
  - URINARY INCONTINENCE [None]
  - VENTRICULAR FIBRILLATION [None]
